FAERS Safety Report 5724204-0 (Version None)
Quarter: 2008Q2

REPORT INFORMATION
  Report Type: 
  Country: None (occurrence: None)
  Receive Date: 20080428
  Receipt Date: 20080415
  Transmission Date: 20081010
  Serious: Yes (Hospitalization)
  Sender: FDA-Public Use
  Company Number: 2008AL002302

PATIENT
  Age: 37 Year
  Sex: Female

DRUGS (4)
  1. IBUPROFEN ORAL SUSPENSION USP, 100 MG/ 5 ML (RX) (ALPHARMA) (IBUPROFEN [Suspect]
     Indication: CONJUNCTIVITIS
  2. IBUPROFEN ORAL SUSPENSION USP, 100 MG/ 5 ML (RX) (ALPHARMA) (IBUPROFEN [Suspect]
     Indication: PHARYNGITIS
  3. IBUPROFEN ORAL SUSPENSION USP, 100 MG/ 5 ML (RX) (ALPHARMA) (IBUPROFEN [Suspect]
     Indication: PYREXIA
  4. AMOXICILLIN [Concomitant]

REACTIONS (4)
  - BILIARY TRACT DISORDER [None]
  - HEPATITIS CHOLESTATIC [None]
  - STEVENS-JOHNSON SYNDROME [None]
  - THROMBOSIS [None]
